FAERS Safety Report 9925274 (Version 1)
Quarter: 2014Q1

REPORT INFORMATION
  Report Type: Spontaneous
  Country: US (occurrence: None)
  Receive Date: 20140225
  Receipt Date: 20140225
  Transmission Date: 20141002
  Serious: Yes (Other)
  Sender: FDA-Public Use
  Company Number: None

PATIENT
  Age: 63 Year
  Sex: Female
  Weight: 106.6 kg

DRUGS (1)
  1. LABETALOL [Suspect]
     Indication: HYPERTENSION
     Dosage: 60 TWICE A DAY
     Dates: start: 20131120, end: 20131204

REACTIONS (1)
  - Blood pressure increased [None]
